FAERS Safety Report 11344609 (Version 2)
Quarter: 2015Q4

REPORT INFORMATION
  Report Type: Report from Study
  Country: US (occurrence: US)
  Receive Date: 20150806
  Receipt Date: 20151013
  Transmission Date: 20160304
  Serious: Yes (Hospitalization, Other)
  Sender: FDA-Public Use
  Company Number: US-EISAI MEDICAL RESEARCH-EC-2015-005063

PATIENT
  Age: 61 Year
  Sex: Male
  Weight: 64.4 kg

DRUGS (11)
  1. ALPRAZOLAM. [Concomitant]
     Active Substance: ALPRAZOLAM
  2. LENVIMA [Suspect]
     Active Substance: LENVATINIB
     Route: 048
     Dates: start: 2015, end: 20150721
  3. BISOPROLOL FUMARATE. [Concomitant]
     Active Substance: BISOPROLOL FUMARATE
  4. VALACYCLOVIR [Concomitant]
     Active Substance: VALACYCLOVIR HYDROCHLORIDE
  5. CYMBALTA [Concomitant]
     Active Substance: DULOXETINE HYDROCHLORIDE
  6. ASTRAGALUS ROOT [Concomitant]
  7. CLARINEX-D 24 HOUR [Concomitant]
     Active Substance: DESLORATADINE\PSEUDOEPHEDRINE SULFATE
  8. LOSARTAN POTASSIUM. [Concomitant]
     Active Substance: LOSARTAN POTASSIUM
  9. METFORMIN HCL [Concomitant]
     Active Substance: METFORMIN HYDROCHLORIDE
  10. LENVIMA [Suspect]
     Active Substance: LENVATINIB
     Indication: THYROID CANCER
     Route: 048
     Dates: start: 20150310, end: 2015
  11. NEXIUM [Concomitant]
     Active Substance: ESOMEPRAZOLE MAGNESIUM

REACTIONS (22)
  - Skin ulcer [Unknown]
  - Fatigue [Unknown]
  - Pain in extremity [Not Recovered/Not Resolved]
  - Renal impairment [Recovered/Resolved]
  - Aphasia [Unknown]
  - Dehydration [Unknown]
  - Seasonal allergy [Unknown]
  - Arthralgia [Unknown]
  - Pyrexia [Unknown]
  - Pancreatic disorder [Unknown]
  - Neuropathy peripheral [Unknown]
  - Chest discomfort [Not Recovered/Not Resolved]
  - Sepsis [Unknown]
  - Cirrhosis alcoholic [Unknown]
  - Joint swelling [Unknown]
  - Asthenia [Unknown]
  - Fibromyalgia [Unknown]
  - Peripheral swelling [Unknown]
  - Diarrhoea [Unknown]
  - Delusion [Not Recovered/Not Resolved]
  - Parasite blood test positive [Not Recovered/Not Resolved]
  - Vomiting [Unknown]

NARRATIVE: CASE EVENT DATE: 2015
